FAERS Safety Report 4751556-0 (Version None)
Quarter: 2005Q3

REPORT INFORMATION
  Report Type: 
  Country: None (occurrence: None)
  Receive Date: 20050824
  Receipt Date: 20050816
  Transmission Date: 20060218
  Serious: Yes (Hospitalization)
  Sender: FDA-Public Use
  Company Number: US-GLAXOSMITHKLINE-A0570423A

PATIENT
  Age: 40 Year
  Sex: Female

DRUGS (3)
  1. WELLBUTRIN XL [Suspect]
     Indication: DEPRESSION
     Dosage: 300MG PER DAY
     Route: 048
     Dates: start: 20040101
  2. LEXAPRO [Concomitant]
  3. EFFEXOR [Concomitant]

REACTIONS (11)
  - ANXIETY [None]
  - BLOOD PRESSURE INCREASED [None]
  - CHEST DISCOMFORT [None]
  - CHEST PAIN [None]
  - DYSPNOEA [None]
  - FATIGUE [None]
  - FEELING JITTERY [None]
  - HEART RATE INCREASED [None]
  - INSOMNIA [None]
  - PAIN IN EXTREMITY [None]
  - PYREXIA [None]
